FAERS Safety Report 7986245-2 (Version None)
Quarter: 2011Q4

REPORT INFORMATION
  Report Type: 
  Country: None (occurrence: None)
  Receive Date: 20111216
  Receipt Date: 20110629
  Transmission Date: 20120403
  Serious: No
  Sender: FDA-Public Use
  Company Number: US-BRISTOL-MYERS SQUIBB COMPANY-15863707

PATIENT
  Age: 67 Year
  Sex: Female
  Weight: 57 kg

DRUGS (2)
  1. ABILIFY [Suspect]
     Indication: DEPRESSION
     Dosage: THERAPY FROM:APPROXIMATELY 6 MONTHS AGO  DOSE DECREASED TO 5MG THEN TO 2MG QD
     Dates: end: 20110101
  2. ABILIFY [Suspect]
     Indication: ANXIETY
     Dosage: THERAPY FROM:APPROXIMATELY 6 MONTHS AGO  DOSE DECREASED TO 5MG THEN TO 2MG QD
     Dates: end: 20110101

REACTIONS (3)
  - ANXIETY [None]
  - TREMOR [None]
  - DYSPNOEA [None]
